FAERS Safety Report 6045835-7 (Version None)
Quarter: 2009Q1

REPORT INFORMATION
  Report Type: 
  Country: None (occurrence: None)
  Receive Date: 20090121
  Receipt Date: 20090113
  Transmission Date: 20090719
  Serious: Yes (Other)
  Sender: FDA-Public Use
  Company Number: GB-ROXANE LABORATORIES, INC.-2009-RO-00058RO

PATIENT
  Age: 54 Year
  Sex: Female

DRUGS (9)
  1. LITHIUM CARBONATE [Suspect]
     Indication: MAJOR DEPRESSION
     Dosage: 800MG
  2. MIDAZOLAM HCL [Suspect]
     Indication: CONVULSION
  3. L-TRYPTOPHAN [Suspect]
     Indication: MAJOR DEPRESSION
     Dosage: 6G
  4. LEVOTHYROXINE SODIUM [Suspect]
     Indication: MAJOR DEPRESSION
     Dosage: 125MCG
  5. CLOMIPRAMINE HCL [Suspect]
     Indication: MAJOR DEPRESSION
     Dosage: 250MG
  6. QUETIAPINE FUMARATE [Suspect]
     Indication: MAJOR DEPRESSION
     Dosage: 800MG
  7. ETOMIDATE [Suspect]
     Indication: ANAESTHESIA
  8. SUXAMETHONIUM [Suspect]
     Indication: PARALYSIS
  9. THIOPENTAL SODIUM [Suspect]
     Indication: CONVULSION
     Route: 042

REACTIONS (18)
  - ANTIPSYCHOTIC DRUG LEVEL BELOW THERAPEUTIC [None]
  - ASTHENIA [None]
  - CONVULSION [None]
  - DEPRESSIVE SYMPTOM [None]
  - DISEASE RECURRENCE [None]
  - DISTURBANCE IN ATTENTION [None]
  - DRUG INEFFECTIVE [None]
  - FEELING ABNORMAL [None]
  - FEELING GUILTY [None]
  - FEELING OF DESPAIR [None]
  - GRAND MAL CONVULSION [None]
  - INSOMNIA [None]
  - MOOD ALTERED [None]
  - POSTICTAL STATE [None]
  - SELF ESTEEM DECREASED [None]
  - SOCIAL AVOIDANT BEHAVIOUR [None]
  - TEARFULNESS [None]
  - TERMINAL INSOMNIA [None]
